FAERS Safety Report 9624691 (Version 1)
Quarter: 2013Q4

REPORT INFORMATION
  Report Type: Spontaneous
  Country: AU (occurrence: AU)
  Receive Date: 20131015
  Receipt Date: 20131015
  Transmission Date: 20140711
  Serious: Yes (Other)
  Sender: FDA-Public Use
  Company Number: AU-LUNDBECK-DKLU1094340

PATIENT
  Sex: Male

DRUGS (3)
  1. SABRIL (TABLET) [Suspect]
     Indication: PRODUCT USED FOR UNKNOWN INDICATION
  2. EPILIM [Suspect]
     Indication: PRODUCT USED FOR UNKNOWN INDICATION
  3. OSPOLOT [Suspect]
     Indication: PRODUCT USED FOR UNKNOWN INDICATION

REACTIONS (2)
  - Optic atrophy [Unknown]
  - Visual field defect [Unknown]
